FAERS Safety Report 8027077-9 (Version None)
Quarter: 2012Q1

REPORT INFORMATION
  Report Type: 
  Country: None (occurrence: None)
  Receive Date: 20120106
  Receipt Date: 20111229
  Transmission Date: 20120608
  Serious: Yes (Other)
  Sender: FDA-Public Use
  Company Number: US-BAYER-2011-063951

PATIENT
  Age: 22 Year
  Sex: Female
  Weight: 88.435 kg

DRUGS (4)
  1. ZOLOFT [Concomitant]
  2. WELLBUTRIN [Concomitant]
  3. ATIVAN [Concomitant]
  4. YASMIN [Suspect]
     Indication: ORAL CONTRACEPTION
     Dosage: UNK
     Route: 048
     Dates: start: 20080201, end: 20091220

REACTIONS (13)
  - DIARRHOEA [None]
  - GALLBLADDER PAIN [None]
  - GALLBLADDER DISORDER [None]
  - BILIARY COLIC [None]
  - DYSPEPSIA [None]
  - ANXIETY [None]
  - ANHEDONIA [None]
  - GASTROINTESTINAL DISORDER [None]
  - INJURY [None]
  - CHOLECYSTITIS ACUTE [None]
  - POST CHOLECYSTECTOMY SYNDROME [None]
  - PAIN [None]
  - PSYCHOLOGICAL TRAUMA [None]
